FAERS Safety Report 10630068 (Version 2)
Quarter: 2014Q4

REPORT INFORMATION
  Report Type: Spontaneous
  Country: US (occurrence: US)
  Receive Date: 20141205
  Receipt Date: 20141205
  Transmission Date: 20150529
  Serious: No
  Sender: FDA-Public Use
  Company Number: US-BRISTOL-MYERS SQUIBB COMPANY-21276753

PATIENT
  Sex: Male
  Weight: 77.1 kg

DRUGS (1)
  1. SPRYCEL [Suspect]
     Active Substance: DASATINIB
     Indication: CHRONIC MYELOID LEUKAEMIA

REACTIONS (5)
  - Anaemia [Unknown]
  - Pleural effusion [Unknown]
  - Confusional state [Unknown]
  - Dyspnoea [Unknown]
  - Burnout syndrome [Unknown]
